FAERS Safety Report 4501342-1 (Version None)
Quarter: 2004Q4

REPORT INFORMATION
  Report Type: 
  Country: None (occurrence: None)
  Receive Date: 20041109
  Receipt Date: 20041026
  Transmission Date: 20050328
  Serious: Yes (Hospitalization, Other)
  Sender: FDA-Public Use
  Company Number: USA041082284

PATIENT
  Sex: Male

DRUGS (1)
  1. HUMALOG [Suspect]
     Dosage: 6 U/3 DAY

REACTIONS (2)
  - PHARMACEUTICAL PRODUCT COMPLAINT [None]
  - QUADRUPLE VESSEL BYPASS GRAFT [None]
